FAERS Safety Report 15430680 (Version 1)
Quarter: 2018Q3

REPORT INFORMATION
  Report Type: Spontaneous
  Country: US (occurrence: US)
  Receive Date: 20180926
  Receipt Date: 20180926
  Transmission Date: 20181010
  Serious: No
  Sender: FDA-Public Use
  Company Number: US-TEVA-2018-US-957160

PATIENT
  Age: 72 Year
  Sex: Female

DRUGS (5)
  1. DILTIAZEM. [Concomitant]
     Active Substance: DILTIAZEM
  2. DONEPEZIL. [Concomitant]
     Active Substance: DONEPEZIL
  3. COPAXONE [Suspect]
     Active Substance: GLATIRAMER ACETATE
     Indication: MULTIPLE SCLEROSIS
     Route: 058
     Dates: start: 20180223
  4. RESTASIS [Concomitant]
     Active Substance: CYCLOSPORINE
  5. DETROL [Concomitant]
     Active Substance: TOLTERODINE TARTRATE

REACTIONS (3)
  - Fall [Recovering/Resolving]
  - Ligament sprain [Recovering/Resolving]
  - Joint injury [Recovering/Resolving]
